FAERS Safety Report 4724556-4 (Version None)
Quarter: 2005Q3

REPORT INFORMATION
  Report Type: 
  Country: None (occurrence: None)
  Receive Date: 20050726
  Receipt Date: 20050718
  Transmission Date: 20060218
  Serious: Yes (Death)
  Sender: FDA-Public Use
  Company Number: US-BRISTOL-MYERS SQUIBB COMPANY-13042965

PATIENT
  Sex: Male

DRUGS (1)
  1. PARAPLATIN [Suspect]

REACTIONS (1)
  - DEATH [None]
